FAERS Safety Report 7170595-6 (Version None)
Quarter: 2010Q4

REPORT INFORMATION
  Report Type: 
  Country: None (occurrence: None)
  Receive Date: 20101217
  Receipt Date: 20101207
  Transmission Date: 20110411
  Serious: Yes (Hospitalization)
  Sender: FDA-Public Use
  Company Number: A0805491A

PATIENT
  Age: 45 Year
  Sex: Female
  Weight: 107.7 kg

DRUGS (9)
  1. AVANDIA [Suspect]
     Indication: DIABETES MELLITUS
     Dosage: 4MG PER DAY
     Route: 048
     Dates: start: 20050815, end: 20070701
  2. SPIRIVA [Concomitant]
  3. PERCOCET [Concomitant]
  4. FLONASE [Concomitant]
  5. PROVENTIL [Concomitant]
  6. CLARITIN [Concomitant]
  7. RISPERDAL [Concomitant]
  8. METHADONE HCL [Concomitant]
  9. ADVAIR [Concomitant]

REACTIONS (2)
  - CARDIAC FAILURE CONGESTIVE [None]
  - MYOCARDIAL INFARCTION [None]
